FAERS Safety Report 14141681 (Version 3)
Quarter: 2017Q4

REPORT INFORMATION
  Report Type: Spontaneous
  Country: US (occurrence: US)
  Receive Date: 20171030
  Receipt Date: 20171208
  Transmission Date: 20180321
  Serious: No
  Sender: FDA-Public Use
  Company Number: US-GLAXOSMITHKLINE-US2017GSK163119

PATIENT
  Sex: Female
  Weight: 72.93 kg

DRUGS (1)
  1. VENTOLIN HFA [Suspect]
     Active Substance: ALBUTEROL SULFATE
     Dosage: UNK

REACTIONS (4)
  - Incorrect dose administered by device [Unknown]
  - Underdose [Unknown]
  - Device malfunction [Unknown]
  - Drug ineffective [Unknown]
